FAERS Safety Report 6627641-5 (Version None)
Quarter: 2010Q1

REPORT INFORMATION
  Report Type: 
  Country: None (occurrence: None)
  Receive Date: 20100308
  Receipt Date: 20100301
  Transmission Date: 20100710
  Serious: Yes (Hospitalization)
  Sender: FDA-Public Use
  Company Number: ALL1-2010-01107

PATIENT
  Age: 72 Year
  Sex: Male
  Weight: 61.2 kg

DRUGS (4)
  1. FOSRENOL [Suspect]
     Indication: HYPERPHOSPHATAEMIA
     Dosage: 1000 MG, OTHER 9WITH MEALS), ORAL
     Route: 048
  2. MAGNESIUM (MAGNESIUM) [Concomitant]
  3. RENAGEL /01459901/ [Concomitant]
  4. SEVELAMER [Concomitant]

REACTIONS (3)
  - HYPERCHOLESTEROLAEMIA [None]
  - HYPERLIPIDAEMIA [None]
  - ULCER HAEMORRHAGE [None]
